FAERS Safety Report 18517747 (Version 5)
Quarter: 2022Q3

REPORT INFORMATION
  Report Type: Spontaneous
  Country: US (occurrence: US)
  Receive Date: 20201118
  Receipt Date: 20220818
  Transmission Date: 20221027
  Serious: Yes (Other)
  Sender: FDA-Public Use
  Company Number: US-PFIZER INC-2020453252

PATIENT
  Age: 38 Year
  Sex: Female
  Weight: 44.45 kg

DRUGS (17)
  1. PREMARIN [Suspect]
     Active Substance: ESTROGENS, CONJUGATED
     Indication: Hormone replacement therapy
     Dosage: 0.3 MG, 1X/DAY, (ONE TIME A DAY IN THE MORNING)
     Route: 048
  2. WELLBUTRIN [Concomitant]
     Active Substance: BUPROPION HYDROCHLORIDE
     Indication: Panic attack
     Dosage: 300 MG, 1X/DAY, (300 MG ONE TABLET A DAY IN THE MORNING)
  3. WELLBUTRIN [Concomitant]
     Active Substance: BUPROPION HYDROCHLORIDE
     Indication: Anxiety
  4. WELLBUTRIN [Concomitant]
     Active Substance: BUPROPION HYDROCHLORIDE
     Indication: Depression
  5. TRINTELLIX [Concomitant]
     Active Substance: VORTIOXETINE HYDROBROMIDE
     Indication: Sleep disorder
     Dosage: 10 MG
  6. TRINTELLIX [Concomitant]
     Active Substance: VORTIOXETINE HYDROBROMIDE
     Indication: Depression
     Dosage: 20 MG, DAILY
  7. TRINTELLIX [Concomitant]
     Active Substance: VORTIOXETINE HYDROBROMIDE
     Indication: Anxiety
  8. TRINTELLIX [Concomitant]
     Active Substance: VORTIOXETINE HYDROBROMIDE
     Indication: Panic attack
  9. LOSARTAN [Concomitant]
     Active Substance: LOSARTAN
     Indication: Blood pressure abnormal
     Dosage: 100 MG, 1X/DAY (STARTED LOSARTAN SEVERAL YEARS)
  10. SIMVASTATIN [Concomitant]
     Active Substance: SIMVASTATIN
     Indication: Blood cholesterol abnormal
     Dosage: 40 MG, 1X/DAY (ONCE A DAY)
  11. PANTOPRAZOLE [Concomitant]
     Active Substance: PANTOPRAZOLE
     Indication: Abdominal discomfort
     Dosage: 40 MG, 1X/DAY, (40 MG TABLET, ONE IN THE MORNING)
  12. PANTOPRAZOLE [Concomitant]
     Active Substance: PANTOPRAZOLE
     Dosage: 40 MG, 2X/DAY (TWICE A DAY)
  13. ASPIRIN [Concomitant]
     Active Substance: ASPIRIN
     Indication: Cardiac disorder
     Dosage: 81 MG, 1X/DAY (AT NIGHT)
  14. ZOFRAN [Concomitant]
     Active Substance: ONDANSETRON HYDROCHLORIDE
     Indication: Nausea
     Dosage: 8 MG, AS NEEDED
  15. ZOFRAN [Concomitant]
     Active Substance: ONDANSETRON HYDROCHLORIDE
     Indication: Gastrointestinal disorder
  16. METOPROLOL [Concomitant]
     Active Substance: METOPROLOL
     Indication: Blood pressure abnormal
     Dosage: 50 MG, 2X/DAY
  17. XANAX [Concomitant]
     Active Substance: ALPRAZOLAM
     Indication: Nerve injury
     Dosage: 0.3 MG, 2X/DAY

REACTIONS (10)
  - Systemic lupus erythematosus [Unknown]
  - Gastrointestinal disorder [Unknown]
  - Hypertension [Unknown]
  - Blood immunoglobulin G decreased [Not Recovered/Not Resolved]
  - Anaemia [Not Recovered/Not Resolved]
  - Condition aggravated [Not Recovered/Not Resolved]
  - Hot flush [Unknown]
  - Insomnia [Unknown]
  - Headache [Unknown]
  - Immune system disorder [Unknown]

NARRATIVE: CASE EVENT DATE: 19890101
